FAERS Safety Report 5058672-7 (Version None)
Quarter: 2006Q3

REPORT INFORMATION
  Report Type: 
  Country: None (occurrence: None)
  Receive Date: 20060721
  Receipt Date: 20060711
  Transmission Date: 20061208
  Serious: Yes (Death)
  Sender: FDA-Public Use
  Company Number: AT-MERCK-0607AUT00007

PATIENT
  Age: 67 Year
  Sex: Male
  Weight: 110 kg

DRUGS (9)
  1. ZETIA [Suspect]
     Indication: LIPID METABOLISM DISORDER
     Route: 048
     Dates: start: 20050704, end: 20060612
  2. INSULIN, BIPHASIC ISOPHANE [INJECTION] [Concomitant]
     Route: 051
  3. COZAAR [Concomitant]
     Route: 048
  4. HYDROCHLOROTHIAZIDE AND LOSARTAN POTASSIUM [Concomitant]
     Route: 048
  5. METFORMIN HYDROCHLORIDE [Concomitant]
     Route: 065
  6. ASPIRIN [Concomitant]
     Route: 048
  7. BISOPROLOL FUMARATE [Concomitant]
     Route: 065
  8. PRAVASTATIN SODIUM [Concomitant]
     Route: 048
  9. DOXAZOSIN MESYLATE [Concomitant]
     Route: 048

REACTIONS (5)
  - BLOOD UREA INCREASED [None]
  - CIRCULATORY COLLAPSE [None]
  - DIZZINESS [None]
  - GAMMA-GLUTAMYLTRANSFERASE INCREASED [None]
  - SUDDEN DEATH [None]
